FAERS Safety Report 16440171 (Version 1)
Quarter: 2019Q3

REPORT INFORMATION
  Report Type: Spontaneous
  Country: US (occurrence: US)
  Receive Date: 20190615
  Receipt Date: 20190615
  Transmission Date: 20191004
  Serious: Yes (Disabling)
  Sender: FDA-Public Use
  Company Number: None

PATIENT
  Age: 66 Year
  Sex: Female

DRUGS (2)
  1. LEVAQUIN [Suspect]
     Active Substance: LEVOFLOXACIN
     Indication: PRODUCT USED FOR UNKNOWN INDICATION
     Route: 042
  2. CIPRO [Suspect]
     Active Substance: CIPROFLOXACIN HYDROCHLORIDE

REACTIONS (26)
  - Neoplasm [None]
  - Disorientation [None]
  - Cognitive disorder [None]
  - Burning sensation [None]
  - Rash [None]
  - Complication associated with device [None]
  - Erythema [None]
  - Nosocomial infection [None]
  - Radiculopathy [None]
  - Tendon disorder [None]
  - Neuropathy peripheral [None]
  - Hypoglycaemia [None]
  - Pain in extremity [None]
  - Disturbance in attention [None]
  - Confusional state [None]
  - Nervousness [None]
  - Fear [None]
  - Spinal disorder [None]
  - Memory impairment [None]
  - Photosensitivity reaction [None]
  - Procedural pain [None]
  - Mental disorder [None]
  - Arrhythmia [None]
  - Stevens-Johnson syndrome [None]
  - Disability [None]
  - Pseudomonas infection [None]

NARRATIVE: CASE EVENT DATE: 20091215
